FAERS Safety Report 17744888 (Version 1)
Quarter: 2020Q2

REPORT INFORMATION
  Report Type: Spontaneous
  Country: AU (occurrence: AU)
  Receive Date: 20200505
  Receipt Date: 20200505
  Transmission Date: 20200714
  Serious: Yes (Other)
  Sender: FDA-Public Use
  Company Number: AU-TEVA-2020-AU-1231153

PATIENT
  Age: 66 Year
  Sex: Male

DRUGS (4)
  1. CYCLOPHOSPHAMIDE. [Suspect]
     Active Substance: CYCLOPHOSPHAMIDE
     Indication: PLASMA CELL MYELOMA
     Dosage: RECEIVED 10 CYCLES
     Route: 065
  2. THALIDOMIDE [Suspect]
     Active Substance: THALIDOMIDE
     Indication: PLASMA CELL MYELOMA
     Dosage: 100 MILLIGRAM DAILY;
     Route: 065
  3. DEXAMETHASONE. [Suspect]
     Active Substance: DEXAMETHASONE
     Indication: PLASMA CELL MYELOMA
     Dosage: RECEIVED 8 CYCLES
     Route: 065
  4. IMATINIB. [Suspect]
     Active Substance: IMATINIB MESYLATE
     Indication: PLASMA CELL MYELOMA
     Dosage: 400 MILLIGRAM DAILY;
     Route: 065

REACTIONS (7)
  - Thrombocytopenia [Unknown]
  - Pleural effusion [Recovering/Resolving]
  - Diabetes mellitus [Unknown]
  - Chronic myeloid leukaemia [Unknown]
  - Neutropenia [Unknown]
  - Ascites [Recovering/Resolving]
  - Anaemia [Unknown]
